FAERS Safety Report 25302340 (Version 1)
Quarter: 2025Q2

REPORT INFORMATION
  Report Type: Spontaneous
  Country: GB (occurrence: GB)
  Receive Date: 20250512
  Receipt Date: 20250512
  Transmission Date: 20250716
  Serious: Yes (Hospitalization)
  Sender: MYLAN
  Company Number: None

PATIENT
  Age: 56 Year

DRUGS (64)
  1. APIXABAN [Suspect]
     Active Substance: APIXABAN
     Indication: Product used for unknown indication
     Dosage: 5 MILLIGRAM, BID (9EVERY 12 HOURS)
  2. APIXABAN [Suspect]
     Active Substance: APIXABAN
     Dosage: 5 MILLIGRAM, BID (9EVERY 12 HOURS)
     Route: 065
  3. APIXABAN [Suspect]
     Active Substance: APIXABAN
     Dosage: 5 MILLIGRAM, BID (9EVERY 12 HOURS)
     Route: 065
  4. APIXABAN [Suspect]
     Active Substance: APIXABAN
     Dosage: 5 MILLIGRAM, BID (9EVERY 12 HOURS)
  5. FUROSEMIDE [Concomitant]
     Active Substance: FUROSEMIDE
     Dosage: 1 DOSAGE FORM, BID (40 MG TABLETS ONE TO BE TAKEN EACH MORNING AND ONE TO BE TAKEN AT LUNCHTIME)
  6. FUROSEMIDE [Concomitant]
     Active Substance: FUROSEMIDE
     Dosage: 1 DOSAGE FORM, BID (40 MG TABLETS ONE TO BE TAKEN EACH MORNING AND ONE TO BE TAKEN AT LUNCHTIME)
     Route: 065
  7. FUROSEMIDE [Concomitant]
     Active Substance: FUROSEMIDE
     Dosage: 1 DOSAGE FORM, BID (40 MG TABLETS ONE TO BE TAKEN EACH MORNING AND ONE TO BE TAKEN AT LUNCHTIME)
     Route: 065
  8. FUROSEMIDE [Concomitant]
     Active Substance: FUROSEMIDE
     Dosage: 1 DOSAGE FORM, BID (40 MG TABLETS ONE TO BE TAKEN EACH MORNING AND ONE TO BE TAKEN AT LUNCHTIME)
  9. FOLIC ACID [Concomitant]
     Active Substance: FOLIC ACID
     Dosage: 1 DOSAGE FORM, QD (5 MG TABLETS ONE TO BE TAKEN EACH DAY FOR 4 MONTHS)
  10. FOLIC ACID [Concomitant]
     Active Substance: FOLIC ACID
     Dosage: 1 DOSAGE FORM, QD (5 MG TABLETS ONE TO BE TAKEN EACH DAY FOR 4 MONTHS)
     Route: 065
  11. FOLIC ACID [Concomitant]
     Active Substance: FOLIC ACID
     Dosage: 1 DOSAGE FORM, QD (5 MG TABLETS ONE TO BE TAKEN EACH DAY FOR 4 MONTHS)
     Route: 065
  12. FOLIC ACID [Concomitant]
     Active Substance: FOLIC ACID
     Dosage: 1 DOSAGE FORM, QD (5 MG TABLETS ONE TO BE TAKEN EACH DAY FOR 4 MONTHS)
  13. NITROGLYCERIN [Concomitant]
     Active Substance: NITROGLYCERIN
  14. NITROGLYCERIN [Concomitant]
     Active Substance: NITROGLYCERIN
     Route: 065
  15. NITROGLYCERIN [Concomitant]
     Active Substance: NITROGLYCERIN
     Route: 065
  16. NITROGLYCERIN [Concomitant]
     Active Substance: NITROGLYCERIN
  17. PROPRANOLOL [Concomitant]
     Active Substance: PROPRANOLOL HYDROCHLORIDE
     Dosage: 1 DOSAGE FORM, BID (40 MG TABLETS ONE TO BE TAKEN TWICE A DAY)
  18. PROPRANOLOL [Concomitant]
     Active Substance: PROPRANOLOL HYDROCHLORIDE
     Dosage: 1 DOSAGE FORM, BID (40 MG TABLETS ONE TO BE TAKEN TWICE A DAY)
     Route: 065
  19. PROPRANOLOL [Concomitant]
     Active Substance: PROPRANOLOL HYDROCHLORIDE
     Dosage: 1 DOSAGE FORM, BID (40 MG TABLETS ONE TO BE TAKEN TWICE A DAY)
     Route: 065
  20. PROPRANOLOL [Concomitant]
     Active Substance: PROPRANOLOL HYDROCHLORIDE
     Dosage: 1 DOSAGE FORM, BID (40 MG TABLETS ONE TO BE TAKEN TWICE A DAY)
  21. MORPHINE SULFATE [Concomitant]
     Active Substance: MORPHINE SULFATE
     Indication: Breakthrough pain
     Dosage: 2.5 MILLILITER, Q4H (10 MG / 5 ML ORAL SOLUTION 2.5 ML (5 MG) 4 HOURLY AS REQUIRED, FOR BREAK THROUGH PAIN)
  22. MORPHINE SULFATE [Concomitant]
     Active Substance: MORPHINE SULFATE
     Dosage: 2.5 MILLILITER, Q4H (10 MG / 5 ML ORAL SOLUTION 2.5 ML (5 MG) 4 HOURLY AS REQUIRED, FOR BREAK THROUGH PAIN)
     Route: 065
  23. MORPHINE SULFATE [Concomitant]
     Active Substance: MORPHINE SULFATE
     Dosage: 2.5 MILLILITER, Q4H (10 MG / 5 ML ORAL SOLUTION 2.5 ML (5 MG) 4 HOURLY AS REQUIRED, FOR BREAK THROUGH PAIN)
     Route: 065
  24. MORPHINE SULFATE [Concomitant]
     Active Substance: MORPHINE SULFATE
     Dosage: 2.5 MILLILITER, Q4H (10 MG / 5 ML ORAL SOLUTION 2.5 ML (5 MG) 4 HOURLY AS REQUIRED, FOR BREAK THROUGH PAIN)
  25. ATORVASTATIN [Concomitant]
     Active Substance: ATORVASTATIN
     Dosage: 1 DOSAGE FORM, PM (40 MG TABLETS TAKE ONE DAILY EACH NIGHT)
  26. ATORVASTATIN [Concomitant]
     Active Substance: ATORVASTATIN
     Dosage: 1 DOSAGE FORM, PM (40 MG TABLETS TAKE ONE DAILY EACH NIGHT)
     Route: 065
  27. ATORVASTATIN [Concomitant]
     Active Substance: ATORVASTATIN
     Dosage: 1 DOSAGE FORM, PM (40 MG TABLETS TAKE ONE DAILY EACH NIGHT)
     Route: 065
  28. ATORVASTATIN [Concomitant]
     Active Substance: ATORVASTATIN
     Dosage: 1 DOSAGE FORM, PM (40 MG TABLETS TAKE ONE DAILY EACH NIGHT)
  29. AMLODIPINE [Concomitant]
     Active Substance: AMLODIPINE BESYLATE
     Dosage: 1 DOSAGE FORM, PM (10 MG TABLETS ONE TO BE TAKEN IN THE NIGHT)
  30. AMLODIPINE [Concomitant]
     Active Substance: AMLODIPINE BESYLATE
     Dosage: 1 DOSAGE FORM, PM (10 MG TABLETS ONE TO BE TAKEN IN THE NIGHT)
     Route: 065
  31. AMLODIPINE [Concomitant]
     Active Substance: AMLODIPINE BESYLATE
     Dosage: 1 DOSAGE FORM, PM (10 MG TABLETS ONE TO BE TAKEN IN THE NIGHT)
     Route: 065
  32. AMLODIPINE [Concomitant]
     Active Substance: AMLODIPINE BESYLATE
     Dosage: 1 DOSAGE FORM, PM (10 MG TABLETS ONE TO BE TAKEN IN THE NIGHT)
  33. THIAMINE [Concomitant]
     Active Substance: THIAMINE
     Dosage: 1 DOSAGE FORM, QD (100 MG TABLETS ONE TO BE TAKEN EACH DAY)
  34. THIAMINE [Concomitant]
     Active Substance: THIAMINE
     Dosage: 1 DOSAGE FORM, QD (100 MG TABLETS ONE TO BE TAKEN EACH DAY)
     Route: 065
  35. THIAMINE [Concomitant]
     Active Substance: THIAMINE
     Dosage: 1 DOSAGE FORM, QD (100 MG TABLETS ONE TO BE TAKEN EACH DAY)
     Route: 065
  36. THIAMINE [Concomitant]
     Active Substance: THIAMINE
     Dosage: 1 DOSAGE FORM, QD (100 MG TABLETS ONE TO BE TAKEN EACH DAY)
  37. MIRTAZAPINE [Concomitant]
     Active Substance: MIRTAZAPINE
     Dosage: 1 DOSAGE FORM, PM (15 MG TABLETS ONE TO BE TAKEN AT NIGHT)
  38. MIRTAZAPINE [Concomitant]
     Active Substance: MIRTAZAPINE
     Dosage: 1 DOSAGE FORM, PM (15 MG TABLETS ONE TO BE TAKEN AT NIGHT)
     Route: 065
  39. MIRTAZAPINE [Concomitant]
     Active Substance: MIRTAZAPINE
     Dosage: 1 DOSAGE FORM, PM (15 MG TABLETS ONE TO BE TAKEN AT NIGHT)
     Route: 065
  40. MIRTAZAPINE [Concomitant]
     Active Substance: MIRTAZAPINE
     Dosage: 1 DOSAGE FORM, PM (15 MG TABLETS ONE TO BE TAKEN AT NIGHT)
  41. PREGABALIN [Concomitant]
     Active Substance: PREGABALIN
     Dosage: 1 DOSAGE FORM, BID (225 MG CAPSULES ONE TO BE TAKEN TWICE A DAY)
  42. PREGABALIN [Concomitant]
     Active Substance: PREGABALIN
     Dosage: 1 DOSAGE FORM, BID (225 MG CAPSULES ONE TO BE TAKEN TWICE A DAY)
     Route: 065
  43. PREGABALIN [Concomitant]
     Active Substance: PREGABALIN
     Dosage: 1 DOSAGE FORM, BID (225 MG CAPSULES ONE TO BE TAKEN TWICE A DAY)
     Route: 065
  44. PREGABALIN [Concomitant]
     Active Substance: PREGABALIN
     Dosage: 1 DOSAGE FORM, BID (225 MG CAPSULES ONE TO BE TAKEN TWICE A DAY)
  45. OMEPRAZOLE [Concomitant]
     Active Substance: OMEPRAZOLE
     Dosage: 1 DOSAGE FORM, BID (20 MG GASTRO-RESISTANT CAPSULES ONE TO BE TAKEN TWICE A DAY)
  46. OMEPRAZOLE [Concomitant]
     Active Substance: OMEPRAZOLE
     Dosage: 1 DOSAGE FORM, BID (20 MG GASTRO-RESISTANT CAPSULES ONE TO BE TAKEN TWICE A DAY)
     Route: 065
  47. OMEPRAZOLE [Concomitant]
     Active Substance: OMEPRAZOLE
     Dosage: 1 DOSAGE FORM, BID (20 MG GASTRO-RESISTANT CAPSULES ONE TO BE TAKEN TWICE A DAY)
     Route: 065
  48. OMEPRAZOLE [Concomitant]
     Active Substance: OMEPRAZOLE
     Dosage: 1 DOSAGE FORM, BID (20 MG GASTRO-RESISTANT CAPSULES ONE TO BE TAKEN TWICE A DAY)
  49. ALBUTEROL [Concomitant]
     Active Substance: ALBUTEROL
  50. ALBUTEROL [Concomitant]
     Active Substance: ALBUTEROL
     Route: 060
  51. ALBUTEROL [Concomitant]
     Active Substance: ALBUTEROL
     Route: 060
  52. ALBUTEROL [Concomitant]
     Active Substance: ALBUTEROL
  53. RAMIPRIL [Concomitant]
     Active Substance: RAMIPRIL
     Dosage: 1 DOSAGE FORM, PM (2.5 MG CAPSULES ONE TO BE TAKEN EACH NIGHT)
  54. RAMIPRIL [Concomitant]
     Active Substance: RAMIPRIL
     Dosage: 1 DOSAGE FORM, PM (2.5 MG CAPSULES ONE TO BE TAKEN EACH NIGHT)
     Route: 065
  55. RAMIPRIL [Concomitant]
     Active Substance: RAMIPRIL
     Dosage: 1 DOSAGE FORM, PM (2.5 MG CAPSULES ONE TO BE TAKEN EACH NIGHT)
     Route: 065
  56. RAMIPRIL [Concomitant]
     Active Substance: RAMIPRIL
     Dosage: 1 DOSAGE FORM, PM (2.5 MG CAPSULES ONE TO BE TAKEN EACH NIGHT)
  57. FLUOXETINE [Concomitant]
     Active Substance: FLUOXETINE HYDROCHLORIDE
     Dosage: 3 DOSAGE FORM, QD (20 MG CAPSULES THREE TO BE TAKEN DAILY)
  58. FLUOXETINE [Concomitant]
     Active Substance: FLUOXETINE HYDROCHLORIDE
     Dosage: 3 DOSAGE FORM, QD (20 MG CAPSULES THREE TO BE TAKEN DAILY)
     Route: 065
  59. FLUOXETINE [Concomitant]
     Active Substance: FLUOXETINE HYDROCHLORIDE
     Dosage: 3 DOSAGE FORM, QD (20 MG CAPSULES THREE TO BE TAKEN DAILY)
     Route: 065
  60. FLUOXETINE [Concomitant]
     Active Substance: FLUOXETINE HYDROCHLORIDE
     Dosage: 3 DOSAGE FORM, QD (20 MG CAPSULES THREE TO BE TAKEN DAILY)
  61. BECLOMETHASONE DIPROPIONATE\FORMOTEROL FUMARATE\GLYCOPYRROLATE [Concomitant]
     Active Substance: BECLOMETHASONE DIPROPIONATE\FORMOTEROL FUMARATE\GLYCOPYRROLATE
     Dosage: UNK UNK, BID (172 / 5 / 9 MICROGRAMS / DOSE INHALER TWO PUFFS TO BE INHALED TWICE A DAY)
  62. BECLOMETHASONE DIPROPIONATE\FORMOTEROL FUMARATE\GLYCOPYRROLATE [Concomitant]
     Active Substance: BECLOMETHASONE DIPROPIONATE\FORMOTEROL FUMARATE\GLYCOPYRROLATE
     Dosage: UNK UNK, BID (172 / 5 / 9 MICROGRAMS / DOSE INHALER TWO PUFFS TO BE INHALED TWICE A DAY)
     Route: 065
  63. BECLOMETHASONE DIPROPIONATE\FORMOTEROL FUMARATE\GLYCOPYRROLATE [Concomitant]
     Active Substance: BECLOMETHASONE DIPROPIONATE\FORMOTEROL FUMARATE\GLYCOPYRROLATE
     Dosage: UNK UNK, BID (172 / 5 / 9 MICROGRAMS / DOSE INHALER TWO PUFFS TO BE INHALED TWICE A DAY)
     Route: 065
  64. BECLOMETHASONE DIPROPIONATE\FORMOTEROL FUMARATE\GLYCOPYRROLATE [Concomitant]
     Active Substance: BECLOMETHASONE DIPROPIONATE\FORMOTEROL FUMARATE\GLYCOPYRROLATE
     Dosage: UNK UNK, BID (172 / 5 / 9 MICROGRAMS / DOSE INHALER TWO PUFFS TO BE INHALED TWICE A DAY)

REACTIONS (1)
  - Blister [Unknown]
